FAERS Safety Report 5644124-X (Version None)
Quarter: 2008Q1

REPORT INFORMATION
  Report Type: 
  Country: None (occurrence: None)
  Receive Date: 20080226
  Receipt Date: 20080219
  Transmission Date: 20080703
  Serious: Yes (Death, Hospitalization)
  Sender: FDA-Public Use
  Company Number: A0711424A

PATIENT
  Age: 54 Year
  Sex: Male

DRUGS (7)
  1. ADVAIR DISKUS 100/50 [Suspect]
     Indication: EMPHYSEMA
     Dosage: 1 PUFF(S) /PER DAY/ INHALED
     Route: 055
  2. ATORVASTATIN CALCIUM [Concomitant]
  3. EYE MEDICATION [Concomitant]
  4. ALBUTEROL [Concomitant]
  5. METOPROLOL TARTRATE [Concomitant]
  6. HYDROCHLOROTHIAZIDE [Concomitant]
  7. ANTIBIOTICS [Concomitant]

REACTIONS (4)
  - BRONCHITIS CHRONIC [None]
  - DYSPNOEA [None]
  - PSEUDOMONAS INFECTION [None]
  - RESPIRATORY FAILURE [None]
